FAERS Safety Report 13858089 (Version 1)
Quarter: 2017Q3

REPORT INFORMATION
  Report Type: Spontaneous
  Country: US (occurrence: US)
  Receive Date: 20170811
  Receipt Date: 20170811
  Transmission Date: 20171127
  Serious: Yes (Other)
  Sender: FDA-Public Use
  Company Number: US-ABBVIE-17P-163-2063999-00

PATIENT
  Age: 77 Year
  Sex: Female

DRUGS (5)
  1. PREDNISONE. [Concomitant]
     Active Substance: PREDNISONE
     Indication: HEADACHE
     Route: 065
  2. METHOTREXATE. [Concomitant]
     Active Substance: METHOTREXATE
     Indication: PRODUCT USED FOR UNKNOWN INDICATION
     Dates: start: 2000
  3. TYLENOL WITH CODEINE [Concomitant]
     Active Substance: ACETAMINOPHEN\CODEINE PHOSPHATE
     Indication: PRODUCT USED FOR UNKNOWN INDICATION
     Route: 065
  4. TYLENOL WITH CODEINE [Concomitant]
     Active Substance: ACETAMINOPHEN\CODEINE PHOSPHATE
     Route: 065
  5. HUMIRA [Suspect]
     Active Substance: ADALIMUMAB
     Indication: PRODUCT USED FOR UNKNOWN INDICATION
     Route: 058
     Dates: start: 2015

REACTIONS (25)
  - Lipodystrophy acquired [Unknown]
  - Foot deformity [Unknown]
  - Chest pain [Unknown]
  - Arthralgia [Unknown]
  - Tenderness [Unknown]
  - Drug ineffective [Unknown]
  - Skin mass [Unknown]
  - Synovitis [Unknown]
  - Oedema peripheral [Unknown]
  - Diverticulum [Unknown]
  - Laryngeal stenosis [Unknown]
  - Rectal haemorrhage [Unknown]
  - Dysphonia [Unknown]
  - Cutaneous vasculitis [Unknown]
  - Peripheral swelling [Unknown]
  - Joint dislocation [Unknown]
  - Skin atrophy [Unknown]
  - Neutrophilia [Unknown]
  - Hand deformity [Unknown]
  - Purpura [Unknown]
  - Atrial fibrillation [Unknown]
  - Erythema [Unknown]
  - Pain in extremity [Unknown]
  - Arrhythmia supraventricular [Unknown]
  - Rheumatoid nodule [Unknown]

NARRATIVE: CASE EVENT DATE: 201703
